FAERS Safety Report 18364498 (Version 3)
Quarter: 2021Q1

REPORT INFORMATION
  Report Type: Spontaneous
  Country: AU (occurrence: AU)
  Receive Date: 20201009
  Receipt Date: 20210127
  Transmission Date: 20210419
  Serious: Yes (Other)
  Sender: FDA-Public Use
  Company Number: NVSC2020AU265034

PATIENT
  Sex: Female

DRUGS (6)
  1. ASCIMINIB [Suspect]
     Active Substance: ASCIMINIB
     Indication: CHRONIC MYELOID LEUKAEMIA
  2. DASATINIB. [Suspect]
     Active Substance: DASATINIB
     Dosage: 40 MG, QD
     Route: 065
     Dates: end: 20200617
  3. ASCIMINIB [Suspect]
     Active Substance: ASCIMINIB
     Indication: TYROSINE KINASE MUTATION
     Dosage: 1 DF, BID
     Route: 048
  4. NILOTINIB [Suspect]
     Active Substance: NILOTINIB
     Indication: CHRONIC MYELOID LEUKAEMIA
     Dosage: UNK
     Route: 065
     Dates: start: 20110930, end: 20111030
  5. DASATINIB. [Suspect]
     Active Substance: DASATINIB
     Indication: CHRONIC MYELOID LEUKAEMIA
     Dosage: UNK
     Route: 065
     Dates: start: 20110730
  6. DASATINIB. [Suspect]
     Active Substance: DASATINIB
     Dosage: 20 MG, QOD
     Route: 065

REACTIONS (8)
  - Blood bilirubin increased [Unknown]
  - Ataxia [Not Recovered/Not Resolved]
  - Brain stem ischaemia [Unknown]
  - Hepatic enzyme abnormal [Unknown]
  - Demyelinating polyneuropathy [Unknown]
  - Hepatotoxicity [Unknown]
  - Jaundice [Unknown]
  - Cytogenetic analysis abnormal [Unknown]
